FAERS Safety Report 7618960 (Version 3)
Quarter: 2020Q3

REPORT INFORMATION
  Report Type: Report from Study
  Country: RU (occurrence: RU)
  Receive Date: 20101006
  Receipt Date: 20101101
  Transmission Date: 20201105
  Serious: Yes (Hospitalization)
  Sender: FDA-Public Use
  Company Number: RU-WYE-H17785810

PATIENT
  Age: 50 Year
  Sex: Female
  Weight: 83 kg

DRUGS (4)
  1. TEMSIROLIMUS. [Suspect]
     Active Substance: TEMSIROLIMUS
     Indication: RENAL CANCER
     Route: 042
     Dates: start: 20091118, end: 20100921
  2. BEVACIZUMAB. [Suspect]
     Active Substance: BEVACIZUMAB
     Indication: RENAL CANCER
     Route: 042
     Dates: start: 20091118, end: 20100921
  3. TEMSIROLIMUS. [Suspect]
     Active Substance: TEMSIROLIMUS
     Route: 042
     Dates: start: 20101012
  4. BEVACIZUMAB. [Suspect]
     Active Substance: BEVACIZUMAB
     Route: 042
     Dates: start: 20101012

REACTIONS (1)
  - Pneumonia [Recovered/Resolved]

NARRATIVE: CASE EVENT DATE: 20100927
